FAERS Safety Report 24177500 (Version 2)
Quarter: 2024Q4

REPORT INFORMATION
  Report Type: Spontaneous
  Country: US (occurrence: US)
  Receive Date: 20240806
  Receipt Date: 20241223
  Transmission Date: 20250114
  Serious: Yes (Hospitalization)
  Sender: DOMPE FARMACEUTICI
  Company Number: US-FARMAPROD-202407-2762

PATIENT
  Age: 55 Year
  Sex: Male
  Weight: 66.22 kg

DRUGS (12)
  1. OXERVATE [Suspect]
     Active Substance: CENEGERMIN-BKBJ
     Indication: Neurotrophic keratopathy
     Route: 047
     Dates: start: 20240613, end: 202407
  2. OXERVATE [Suspect]
     Active Substance: CENEGERMIN-BKBJ
     Indication: Ulcerative keratitis
     Route: 047
     Dates: start: 202409
  3. OFLOXACIN [Concomitant]
     Active Substance: OFLOXACIN
  4. PREDNISOLONE [Concomitant]
     Active Substance: PREDNISOLONE
     Dosage: 15 MG/5 ML
  5. PREGABALIN [Concomitant]
     Active Substance: PREGABALIN
  6. OMEPRAZOLE [Concomitant]
     Active Substance: OMEPRAZOLE
  7. LEVOTHYROXINE SODIUM [Concomitant]
     Active Substance: LEVOTHYROXINE SODIUM
  8. ONDANSETRON [Concomitant]
     Active Substance: ONDANSETRON
     Dosage: DISINTEGRATING
  9. ALBUTEROL SULFATE [Concomitant]
     Active Substance: ALBUTEROL SULFATE
     Dosage: HYDROFLUOROALKANE AEROSOL WITH ADAPTER
  10. TIZANIDINE HYDROCHLORIDE [Concomitant]
     Active Substance: TIZANIDINE HYDROCHLORIDE
  11. BUTRANS [Concomitant]
     Active Substance: BUPRENORPHINE
     Dosage: 20 MCG / HOUR PATCH, TRANSDERMAL WEEKLY
  12. OXYCODONE HYDROCHLORIDE [Concomitant]
     Active Substance: OXYCODONE HYDROCHLORIDE

REACTIONS (2)
  - Fall [Unknown]
  - Confusional state [Unknown]

NARRATIVE: CASE EVENT DATE: 20241031
